FAERS Safety Report 4710625-1 (Version None)
Quarter: 2005Q3

REPORT INFORMATION
  Report Type: 
  Country: None (occurrence: None)
  Receive Date: 20050711
  Receipt Date: 20050517
  Transmission Date: 20060218
  Serious: Yes (Other)
  Sender: FDA-Public Use
  Company Number: PHBS2005JP07078

PATIENT
  Age: 89 Year
  Sex: Male
  Weight: 45 kg

DRUGS (3)
  1. ASPIRIN [Concomitant]
     Dosage: 0.1 G/DAY
     Route: 048
     Dates: start: 20050412
  2. GASTER [Concomitant]
     Dosage: 2 G/DAY
     Route: 048
     Dates: start: 20050407
  3. VOLTAREN [Suspect]
     Indication: PYREXIA
     Dosage: 25 MG, ONCE/SINGLE
     Route: 054
     Dates: start: 20040424, end: 20040424

REACTIONS (4)
  - ATRIAL FIBRILLATION [None]
  - DEPRESSED LEVEL OF CONSCIOUSNESS [None]
  - HYPOTENSION [None]
  - VENTRICULAR EXTRASYSTOLES [None]
